FAERS Safety Report 14795649 (Version 2)
Quarter: 2018Q3

REPORT INFORMATION
  Report Type: Report from Study
  Country: US (occurrence: US)
  Receive Date: 20180423
  Receipt Date: 20180719
  Transmission Date: 20181010
  Serious: No
  Sender: FDA-Public Use
  Company Number: US-AMGEN-USASL2018015178

PATIENT
  Age: 86 Year
  Sex: Female
  Weight: 67.57 kg

DRUGS (1)
  1. REPATHA [Suspect]
     Active Substance: EVOLOCUMAB
     Indication: DYSLIPIDAEMIA
     Dosage: UNK
     Route: 065
     Dates: start: 20170905

REACTIONS (2)
  - Hypoacusis [Unknown]
  - Underdose [Unknown]

NARRATIVE: CASE EVENT DATE: 20180201
